FAERS Safety Report 9976680 (Version 1)
Quarter: 2014Q1

REPORT INFORMATION
  Report Type: Report from Study
  Country: US (occurrence: US)
  Receive Date: 20140306
  Receipt Date: 20140306
  Transmission Date: 20141002
  Serious: No
  Sender: FDA-Public Use
  Company Number: US-ABBVIE-13P-163-1165866-00

PATIENT
  Age: 45 Year
  Sex: Female

DRUGS (5)
  1. HUMIRA [Suspect]
     Indication: RHEUMATOID ARTHRITIS
     Route: 058
     Dates: start: 201308
  2. HUMIRA [Suspect]
     Route: 058
  3. MULTIVITAMINS [Concomitant]
     Indication: VITAMIN SUPPLEMENTATION
  4. ALEVE [Concomitant]
     Indication: PRODUCT USED FOR UNKNOWN INDICATION
  5. FOLIC ACID [Concomitant]
     Indication: VITAMIN SUPPLEMENTATION
     Dates: start: 201310

REACTIONS (13)
  - Joint swelling [Not Recovered/Not Resolved]
  - Nasopharyngitis [Unknown]
  - Respiratory tract congestion [Unknown]
  - Alopecia [Not Recovered/Not Resolved]
  - Headache [Recovering/Resolving]
  - Cough [Recovering/Resolving]
  - Sneezing [Recovered/Resolved]
  - Rhinorrhoea [Recovered/Resolved]
  - Hypoaesthesia [Not Recovered/Not Resolved]
  - Paraesthesia [Not Recovered/Not Resolved]
  - Drug ineffective [Recovered/Resolved]
  - Local swelling [Not Recovered/Not Resolved]
  - Pain in extremity [Not Recovered/Not Resolved]
